FAERS Safety Report 15460378 (Version 5)
Quarter: 2024Q2

REPORT INFORMATION
  Report Type: Report from Study
  Country: US (occurrence: US)
  Receive Date: 20181003
  Receipt Date: 20240502
  Transmission Date: 20240716
  Serious: Yes (Life-Threatening, Hospitalization, Other)
  Sender: FDA-Public Use
  Company Number: US-ABBVIE-18P-163-2493051-00

PATIENT
  Age: 30 Year
  Sex: Male

DRUGS (9)
  1. HUMIRA [Suspect]
     Active Substance: ADALIMUMAB
     Indication: Colitis ulcerative
     Route: 058
     Dates: start: 20160411, end: 20161123
  2. HUMIRA [Suspect]
     Active Substance: ADALIMUMAB
     Route: 058
     Dates: start: 20161123
  3. CELECOXIB [Concomitant]
     Active Substance: CELECOXIB
     Indication: Headache
     Dosage: TIME INTERVAL: AS NECESSARY
     Route: 048
     Dates: start: 20171023
  4. CYCLOBENZAPRINE [Concomitant]
     Active Substance: CYCLOBENZAPRINE
     Indication: Pain
     Dosage: TIME INTERVAL: AS NECESSARY
     Route: 048
     Dates: start: 20170903
  5. FINASTERIDE [Concomitant]
     Active Substance: FINASTERIDE
     Indication: Product used for unknown indication
     Route: 055
     Dates: start: 20171119
  6. INDOMETHACIN [Concomitant]
     Active Substance: INDOMETHACIN
     Indication: Headache
     Dosage: TIME INTERVAL: AS NECESSARY
     Route: 048
     Dates: start: 20180315
  7. SUMATRIPTAN [Concomitant]
     Active Substance: SUMATRIPTAN
     Indication: Headache
     Dosage: TIME INTERVAL: AS NECESSARY
     Route: 048
     Dates: start: 20180202
  8. TRETINOIN [Concomitant]
     Active Substance: TRETINOIN
     Indication: Acne
     Route: 061
     Dates: start: 20180818
  9. CLINDAMYCIN [Concomitant]
     Active Substance: CLINDAMYCIN
     Indication: Acne
     Route: 061
     Dates: start: 20180808

REACTIONS (2)
  - Strangulated umbilical hernia [Recovered/Resolved]
  - Cellulitis [Recovered/Resolved]

NARRATIVE: CASE EVENT DATE: 20180913
